FAERS Safety Report 4673322-7 (Version None)
Quarter: 2005Q2

REPORT INFORMATION
  Report Type: 
  Country: None (occurrence: None)
  Receive Date: 20050524
  Receipt Date: 20050524
  Transmission Date: 20051028
  Serious: Yes (Hospitalization)
  Sender: FDA-Public Use
  Company Number: None

PATIENT
  Age: 87 Year
  Sex: Male
  Weight: 56 kg

DRUGS (7)
  1. MORPHINE [Suspect]
     Indication: BACK PAIN
     Dosage: 15MG BID ORAL
     Route: 048
     Dates: start: 20050126, end: 20050128
  2. PSYLLIUM [Concomitant]
  3. ETODOLAC [Concomitant]
  4. CODEINE 30/ACETAMINOPHEN [Concomitant]
  5. DOXAZOSIN MESYLATE [Concomitant]
  6. DOCUSATE NA [Concomitant]
  7. MILK OF MAGNESIA [Concomitant]

REACTIONS (11)
  - ATRIAL FIBRILLATION [None]
  - BACK PAIN [None]
  - BALANCE DISORDER [None]
  - CONFUSIONAL STATE [None]
  - DEPRESSED LEVEL OF CONSCIOUSNESS [None]
  - FALL [None]
  - HEMIPARESIS [None]
  - HYPERCALCAEMIA [None]
  - MENTAL STATUS CHANGES [None]
  - OEDEMA PERIPHERAL [None]
  - ORAL INTAKE REDUCED [None]
